FAERS Safety Report 20788007 (Version 2)
Quarter: 2022Q2

REPORT INFORMATION
  Report Type: Report from Study
  Country: US (occurrence: US)
  Receive Date: 20220505
  Receipt Date: 20220606
  Transmission Date: 20220721
  Serious: Yes (Hospitalization, Other)
  Sender: FDA-Public Use
  Company Number: US-INSMED-2021-09085-USAA

PATIENT
  Sex: Female

DRUGS (1)
  1. ARIKAYCE [Suspect]
     Active Substance: AMIKACIN
     Indication: Mycobacterial infection
     Dosage: 590 MILLIGRAM, QD
     Route: 055
     Dates: start: 201907, end: 2021

REACTIONS (10)
  - Hospitalisation [Unknown]
  - COVID-19 [Not Recovered/Not Resolved]
  - Cervical vertebral fracture [Unknown]
  - Rib fracture [Unknown]
  - Road traffic accident [Unknown]
  - Mobility decreased [Unknown]
  - Headache [Unknown]
  - Malaise [Unknown]
  - Dyspnoea [Not Recovered/Not Resolved]
  - Therapy interrupted [Unknown]

NARRATIVE: CASE EVENT DATE: 20210101
